FAERS Safety Report 5530345-3 (Version None)
Quarter: 2007Q4

REPORT INFORMATION
  Report Type: 
  Country: None (occurrence: None)
  Receive Date: 20071127
  Receipt Date: 20071127
  Transmission Date: 20080405
  Serious: Yes (Other)
  Sender: FDA-Public Use
  Company Number: None

PATIENT
  Sex: Female
  Weight: 42.9 kg

DRUGS (1)
  1. TAXOL [Suspect]

REACTIONS (3)
  - ANGINA PECTORIS [None]
  - CHEST PAIN [None]
  - INFUSION RELATED REACTION [None]
